FAERS Safety Report 6433363-6 (Version None)
Quarter: 2009Q4

REPORT INFORMATION
  Report Type: 
  Country: None (occurrence: None)
  Receive Date: 20091109
  Receipt Date: 20091105
  Transmission Date: 20100525
  Serious: Yes (Other)
  Sender: FDA-Public Use
  Company Number: IT-ABBOTT-09P-083-0607122-00

PATIENT
  Age: 3 Year
  Sex: Female

DRUGS (2)
  1. MACLADIN SUSPENSION [Suspect]
     Indication: PYREXIA
     Route: 048
     Dates: start: 20091027, end: 20091028
  2. TACHIPIRINA [Concomitant]
     Indication: PYREXIA
     Route: 048
     Dates: start: 20091027, end: 20091028

REACTIONS (2)
  - ANGIOEDEMA [None]
  - DYSPNOEA [None]
